FAERS Safety Report 7347876-6 (Version None)
Quarter: 2011Q1

REPORT INFORMATION
  Report Type: 
  Country: None (occurrence: None)
  Receive Date: 20110202
  Receipt Date: 20110216
  Transmission Date: 20110831
  Serious: Yes (Hospitalization)
  Sender: FDA-Public Use
  Company Number: AE 2011-024

PATIENT
  Age: 66 Year
  Sex: Female

DRUGS (3)
  1. BACLOFEN [Suspect]
     Indication: MUSCLE SPASTICITY
     Dosage: INTRATHECAL
     Route: 037
     Dates: end: 20100121
  2. PRIALT [Suspect]
     Indication: PAIN
     Dosage: 0.06-0.12 UG/HR IT
     Dates: start: 20090529, end: 20101019
  3. DULOXETINE [Concomitant]

REACTIONS (14)
  - DEPRESSIVE SYMPTOM [None]
  - DISTURBANCE IN ATTENTION [None]
  - HYPOMANIA [None]
  - APATHY [None]
  - LOGORRHOEA [None]
  - BLOOD PRESSURE FLUCTUATION [None]
  - MEMORY IMPAIRMENT [None]
  - HEART RATE ABNORMAL [None]
  - MASKED FACIES [None]
  - FRONTOTEMPORAL DEMENTIA [None]
  - POVERTY OF SPEECH [None]
  - DELIRIUM [None]
  - DISINHIBITION [None]
  - DELUSIONAL DISORDER, PERSECUTORY TYPE [None]
